FAERS Safety Report 5621298-8 (Version None)
Quarter: 2008Q1

REPORT INFORMATION
  Report Type: 
  Country: None (occurrence: None)
  Receive Date: 20080211
  Receipt Date: 20080130
  Transmission Date: 20080703
  Serious: Yes (Other)
  Sender: FDA-Public Use
  Company Number: US-JNJFOC-20080101107

PATIENT
  Sex: Male
  Weight: 68.95 kg

DRUGS (1)
  1. TOPAMAX [Suspect]
     Indication: ALCOHOL ABUSE
     Route: 048

REACTIONS (7)
  - BLOOD POTASSIUM DECREASED [None]
  - CONFUSIONAL STATE [None]
  - DYSARTHRIA [None]
  - FACIAL PARESIS [None]
  - GAIT DISTURBANCE [None]
  - HYPERTENSION [None]
  - SPEECH DISORDER [None]
